FAERS Safety Report 14621673 (Version 1)
Quarter: 2018Q1

REPORT INFORMATION
  Report Type: Other
  Country: FR (occurrence: FR)
  Receive Date: 20180310
  Receipt Date: 20180310
  Transmission Date: 20180509
  Serious: Yes (Other)
  Sender: FDA-Public Use
  Company Number: FR-GLENMARK PHARMACEUTICALS-2018GMK032984

PATIENT

DRUGS (8)
  1. IBRUTINIB [Interacting]
     Active Substance: IBRUTINIB
     Indication: CHRONIC LYMPHOCYTIC LEUKAEMIA
     Dosage: 420 MG, UNK
     Route: 048
  2. IBRUTINIB [Interacting]
     Active Substance: IBRUTINIB
     Dosage: 420 MG, UNK
     Route: 048
  3. VORICONAZOLE. [Suspect]
     Active Substance: VORICONAZOLE
     Indication: CEREBRAL ASPERGILLOSIS
     Dosage: DOSAGE FORM: UNSPECIFIED
     Route: 048
  4. IBRUTINIB [Interacting]
     Active Substance: IBRUTINIB
     Dosage: 140 MG, UNK
     Route: 048
  5. RITUXIMAB. [Interacting]
     Active Substance: RITUXIMAB
     Indication: CHRONIC LYMPHOCYTIC LEUKAEMIA
     Dosage: 500 MG/M2, UNK
     Route: 065
  6. PREDNISONE. [Interacting]
     Active Substance: PREDNISONE
     Indication: CHRONIC LYMPHOCYTIC LEUKAEMIA
     Dosage: 20 MG, UNK
     Route: 065
  7. VORICONAZOLE. [Interacting]
     Active Substance: VORICONAZOLE
     Indication: BRONCHOPULMONARY ASPERGILLOSIS
     Dosage: DOSAGE FORM: UNSPECIFIED
     Route: 048
  8. PREDNISONE. [Interacting]
     Active Substance: PREDNISONE
     Dosage: 1.5 MG/KG, UNK
     Route: 065
     Dates: start: 2007

REACTIONS (3)
  - Cerebral aspergillosis [Recovered/Resolved]
  - Drug interaction [Recovered/Resolved]
  - Bronchopulmonary aspergillosis [Recovered/Resolved]
